FAERS Safety Report 25411482 (Version 2)
Quarter: 2025Q2

REPORT INFORMATION
  Report Type: Spontaneous
  Country: JP (occurrence: JP)
  Receive Date: 20250609
  Receipt Date: 20250625
  Transmission Date: 20250717
  Serious: No
  Sender: AMGEN
  Company Number: JP-AMGEN-JPNSP2025109391

PATIENT
  Age: 92 Year
  Sex: Female

DRUGS (1)
  1. EVENITY [Suspect]
     Active Substance: ROMOSOZUMAB-AQQG
     Indication: Osteoporosis
     Route: 058

REACTIONS (2)
  - Pyrexia [Unknown]
  - Feeling abnormal [Unknown]
